FAERS Safety Report 23733224 (Version 2)
Quarter: 2024Q2

REPORT INFORMATION
  Report Type: Spontaneous
  Country: US (occurrence: US)
  Receive Date: 20240411
  Receipt Date: 20240426
  Transmission Date: 20240716
  Serious: Yes (Death, Life-Threatening, Hospitalization)
  Sender: FDA-Public Use
  Company Number: US-TEVA-VS-3180785

PATIENT
  Age: 42 Year
  Sex: Female

DRUGS (3)
  1. ETOPOSIDE [Suspect]
     Active Substance: ETOPOSIDE
     Indication: Hodgkin^s disease
     Dosage: PART OF ICE REGIMEN
     Route: 065
  2. CARBOPLATIN [Suspect]
     Active Substance: CARBOPLATIN
     Indication: Hodgkin^s disease
     Dosage: PART OF ICE REGIMEN
     Route: 065
  3. IFOSFAMIDE [Suspect]
     Active Substance: IFOSFAMIDE
     Indication: Hodgkin^s disease
     Dosage: PART OF ICE REGIMEN
     Route: 065

REACTIONS (9)
  - Posterior reversible encephalopathy syndrome [Unknown]
  - Cerebral haemorrhage [Unknown]
  - Subarachnoid haemorrhage [Unknown]
  - Haemorrhage [Unknown]
  - Subdural haematoma [Unknown]
  - Brain herniation [Unknown]
  - Brain oedema [Unknown]
  - Nervous system disorder [Fatal]
  - Coma [Unknown]
